FAERS Safety Report 6987983-0 (Version None)
Quarter: 2010Q3

REPORT INFORMATION
  Report Type: 
  Country: None (occurrence: None)
  Receive Date: 20100916
  Receipt Date: 20100907
  Transmission Date: 20110219
  Serious: Yes (Hospitalization)
  Sender: FDA-Public Use
  Company Number: A0881157A

PATIENT
  Sex: Female

DRUGS (1)
  1. NICORETTE (MINT) [Suspect]
     Indication: SMOKING CESSATION THERAPY
     Dosage: 1GUM FOUR TIMES PER DAY
     Route: 002
     Dates: start: 20100101, end: 20100901

REACTIONS (7)
  - ACCIDENTAL EXPOSURE [None]
  - ANXIETY [None]
  - DEHYDRATION [None]
  - DRUG INEFFECTIVE [None]
  - NAUSEA [None]
  - NICOTINE DEPENDENCE [None]
  - WITHDRAWAL SYNDROME [None]
